FAERS Safety Report 4321332-1 (Version None)
Quarter: 2004Q1

REPORT INFORMATION
  Report Type: 
  Country: None (occurrence: None)
  Receive Date: 20040322
  Receipt Date: 20030114
  Transmission Date: 20041129
  Serious: No
  Sender: FDA-Public Use
  Company Number: US-BRISTOL-MYERS SQUIBB COMPANY-12224770

PATIENT
  Sex: Female

DRUGS (1)
  1. MONISTAT [Suspect]
     Indication: VAGINAL MYCOSIS
     Route: 067
     Dates: start: 20030113, end: 20030113

REACTIONS (4)
  - GENITAL PRURITUS FEMALE [None]
  - METRORRHAGIA [None]
  - VAGINAL BURNING SENSATION [None]
  - VULVAL OEDEMA [None]
